FAERS Safety Report 19477849 (Version 4)
Quarter: 2021Q4

REPORT INFORMATION
  Report Type: Report from Study
  Country: DK (occurrence: DK)
  Receive Date: 20210630
  Receipt Date: 20211007
  Transmission Date: 20220304
  Serious: Yes (Death, Life-Threatening, Hospitalization, Other)
  Sender: FDA-Public Use
  Company Number: DK-CELGENE-DNK-20210600141

PATIENT
  Age: 67 Year
  Sex: Male

DRUGS (16)
  1. LENALIDOMIDE [Suspect]
     Active Substance: LENALIDOMIDE
     Indication: Mantle cell lymphoma
     Dosage: 15-MG IN CYCLE 1 AND C2, ?10-MG IN CYCLE 3
     Route: 048
     Dates: start: 20210407, end: 20210620
  2. LENALIDOMIDE [Suspect]
     Active Substance: LENALIDOMIDE
     Indication: Off label use
     Dosage: REDUCED DOSE
     Route: 048
     Dates: start: 20210407, end: 20210531
  3. LENALIDOMIDE [Suspect]
     Active Substance: LENALIDOMIDE
     Dosage: REDUCED DOSE
     Route: 048
     Dates: start: 20210406, end: 20210620
  4. VENETOCLAX [Suspect]
     Active Substance: VENETOCLAX
     Indication: Mantle cell lymphoma
     Dosage: 400 MILLIGRAM
     Route: 065
     Dates: start: 20210407, end: 20210619
  5. VENETOCLAX [Suspect]
     Active Substance: VENETOCLAX
     Dosage: REDUCED DOSE
     Route: 065
     Dates: start: 2021, end: 20210531
  6. VENETOCLAX [Suspect]
     Active Substance: VENETOCLAX
     Dosage: REDUCED DOSE
     Route: 065
     Dates: start: 2021, end: 20210621
  7. RITUXIMAB [Suspect]
     Active Substance: RITUXIMAB
     Indication: Mantle cell lymphoma
     Route: 065
     Dates: start: 20210407, end: 20210531
  8. CALCIUM [Concomitant]
     Active Substance: CALCIUM
     Indication: Supplementation therapy
     Route: 065
     Dates: start: 20180904, end: 20210623
  9. ATORVASTATIN [Concomitant]
     Active Substance: ATORVASTATIN
     Indication: Blood cholesterol
     Route: 065
     Dates: start: 20180904, end: 20210623
  10. SULFAMETHOXAZOLE\TRIMETHOPRIM [Concomitant]
     Active Substance: SULFAMETHOXAZOLE\TRIMETHOPRIM
     Indication: Infection prophylaxis
     Route: 065
     Dates: start: 20210406, end: 20210623
  11. ACYCLOVIR [Concomitant]
     Active Substance: ACYCLOVIR
     Indication: Infection prophylaxis
     Route: 065
     Dates: start: 20210406, end: 20210623
  12. FILGRASTIM [Concomitant]
     Active Substance: FILGRASTIM
     Indication: Neutropenia
     Route: 065
     Dates: start: 20210531, end: 20210623
  13. ALLOPURINOL [Concomitant]
     Active Substance: ALLOPURINOL
     Indication: Prophylaxis
     Route: 065
     Dates: start: 20210406, end: 20210623
  14. PRIVIGEN [Concomitant]
     Active Substance: HUMAN IMMUNOGLOBULIN G
     Indication: Hypogammaglobulinaemia
     Dosage: 20 GRAM
     Route: 041
     Dates: start: 20150120, end: 20210505
  15. TINZAPARIN [Concomitant]
     Active Substance: TINZAPARIN
     Indication: Prophylaxis
     Dosage: 10000 IE
     Route: 058
     Dates: start: 20210531, end: 20210623
  16. TINZAPARIN [Concomitant]
     Active Substance: TINZAPARIN
     Dosage: 4500 IE
     Route: 058
     Dates: start: 20210531

REACTIONS (2)
  - Progressive multifocal leukoencephalopathy [Fatal]
  - Pulmonary embolism [Recovered/Resolved]

NARRATIVE: CASE EVENT DATE: 20210510
